FAERS Safety Report 10921383 (Version 4)
Quarter: 2015Q1

REPORT INFORMATION
  Report Type: Report from Study
  Country: CA (occurrence: CA)
  Receive Date: 20150317
  Receipt Date: 20150330
  Transmission Date: 20150721
  Serious: Yes (Hospitalization)
  Sender: FDA-Public Use
  Company Number: CA-ABBVIE-15K-028-1360630-00

PATIENT
  Age: 20 Year
  Sex: Female
  Weight: 56.8 kg

DRUGS (5)
  1. HUMIRA [Suspect]
     Active Substance: ADALIMUMAB
     Dosage: REINDUCTION DOSE
     Route: 058
     Dates: start: 20150309, end: 20150309
  2. VITAMIN D [Concomitant]
     Active Substance: CHOLECALCIFEROL
     Indication: PRODUCT USED FOR UNKNOWN INDICATION
  3. HUMIRA [Suspect]
     Active Substance: ADALIMUMAB
     Indication: CROHN^S DISEASE
     Route: 058
     Dates: start: 20120724, end: 20150221
  4. HUMIRA [Suspect]
     Active Substance: ADALIMUMAB
     Route: 058
     Dates: start: 201503
  5. FERROUS SULFATE [Concomitant]
     Active Substance: FERROUS SULFATE\FERROUS SULFATE, DRIED
     Indication: ANAEMIA
     Route: 048

REACTIONS (7)
  - Streptococcal sepsis [Recovered/Resolved]
  - Crohn^s disease [Recovering/Resolving]
  - Corynebacterium sepsis [Recovered/Resolved]
  - Gastrointestinal fistula [Recovering/Resolving]
  - Vaginal infection [Unknown]
  - Abscess [Unknown]
  - Panic attack [Not Recovered/Not Resolved]

NARRATIVE: CASE EVENT DATE: 2015
